FAERS Safety Report 7945465 (Version 2)
Quarter: 2013Q2

REPORT INFORMATION
  Report Type: Spontaneous
  Country: US (occurrence: None)
  Receive Date: 20110302
  Receipt Date: 20120621
  Transmission Date: 20140414
  Serious: Yes (Other)
  Sender: FDA-Public Use
  Company Number: 025499

PATIENT
  Sex: Female
  Weight: 44.5 kg

DRUGS (1)
  1. CIMZIA [Suspect]
     Indication: CROHN^S DISEASE
     Route: 058
     Dates: start: 20090115

REACTIONS (7)
  - FISTULA [None]
  - TACHYCARDIA [None]
  - Balance disorder [None]
  - BLADDER PAIN [None]
  - URINE ABNORMALITY [None]
  - FATIGUE [None]
  - GAIT DISTURBANCE [None]
